FAERS Safety Report 13196395 (Version 1)
Quarter: 2017Q1

REPORT INFORMATION
  Report Type: Spontaneous
  Country: GB (occurrence: GB)
  Receive Date: 20170208
  Receipt Date: 20170208
  Transmission Date: 20170428
  Serious: Yes (Death, Other)
  Sender: FDA-Public Use
  Company Number: GB-ORION CORPORATION ORION PHARMA-TREX2017-0005

PATIENT
  Age: 64 Year
  Sex: Female

DRUGS (1)
  1. METHOTREXATE. [Suspect]
     Active Substance: METHOTREXATE
     Indication: PSORIASIS
     Dosage: LOW DOSE
     Route: 065

REACTIONS (5)
  - Pancytopenia [Unknown]
  - Pneumonia [Fatal]
  - Folate deficiency [Unknown]
  - Anaemia megaloblastic [Fatal]
  - Haematotoxicity [Unknown]
